FAERS Safety Report 13189208 (Version 1)
Quarter: 2017Q1

REPORT INFORMATION
  Report Type: Other
  Country: CA (occurrence: CA)
  Receive Date: 20170206
  Receipt Date: 20170206
  Transmission Date: 20170428
  Serious: Yes (Congenital Anomaly)
  Sender: FDA-Public Use
  Company Number: CA-DUCHESNAY INC.-1062779

PATIENT
  Age: 20 Month
  Sex: Male
  Weight: 10 kg

DRUGS (1)
  1. DICLEGIS [Suspect]
     Active Substance: DOXYLAMINE SUCCINATE\PYRIDOXINE HYDROCHLORIDE
     Route: 064

REACTIONS (1)
  - Polydactyly [Not Recovered/Not Resolved]
